FAERS Safety Report 25196082 (Version 1)
Quarter: 2025Q2

REPORT INFORMATION
  Report Type: Spontaneous
  Country: US (occurrence: US)
  Receive Date: 20250415
  Receipt Date: 20250415
  Transmission Date: 20250716
  Serious: Yes (Other)
  Sender: UCB
  Company Number: US-UCBSA-2025021325

PATIENT
  Age: 34 Year
  Sex: Male

DRUGS (3)
  1. BIMZELX [Suspect]
     Active Substance: BIMEKIZUMAB-BKZX
     Indication: Product used for unknown indication
  2. MELOXICAM [Concomitant]
     Active Substance: MELOXICAM
     Indication: Product used for unknown indication
  3. NALTREXONE [Concomitant]
     Active Substance: NALTREXONE
     Indication: Product used for unknown indication

REACTIONS (12)
  - Psoriatic arthropathy [Unknown]
  - Hypoaesthesia [Unknown]
  - Fatigue [Unknown]
  - Pharyngitis streptococcal [Unknown]
  - Immune system disorder [Unknown]
  - Hangover [Unknown]
  - Arthropathy [Unknown]
  - Muscle tightness [Unknown]
  - Muscular weakness [Unknown]
  - Plantar fasciitis [Unknown]
  - Pain in extremity [Unknown]
  - Proctalgia [Unknown]
